FAERS Safety Report 19581175 (Version 1)
Quarter: 2021Q3

REPORT INFORMATION
  Report Type: Spontaneous
  Country: US (occurrence: US)
  Receive Date: 20210719
  Receipt Date: 20210719
  Transmission Date: 20211014
  Serious: Yes (Other)
  Sender: FDA-Public Use
  Company Number: None

PATIENT
  Age: 62 Year
  Sex: Female
  Weight: 99 kg

DRUGS (4)
  1. HYDRALAZINE 25MG [Concomitant]
     Active Substance: HYDRALAZINE HYDROCHLORIDE
     Dates: start: 20200422
  2. ISOSORBIDE DINITRATE 20 [Concomitant]
     Dates: start: 20210503
  3. EPCLUSA [Suspect]
     Active Substance: SOFOSBUVIR\VELPATASVIR
     Indication: HEPATITIS
     Route: 048
     Dates: start: 20210625
  4. SPIRONOLACTONE 25 [Concomitant]
     Active Substance: SPIRONOLACTONE
     Dates: start: 20200310

REACTIONS (2)
  - Dysuria [None]
  - Arthralgia [None]

NARRATIVE: CASE EVENT DATE: 20210630
